FAERS Safety Report 4448792-X (Version None)
Quarter: 2004Q3

REPORT INFORMATION
  Report Type: 
  Country: None (occurrence: None)
  Receive Date: 20040909
  Receipt Date: 20040825
  Transmission Date: 20050211
  Serious: Yes (Hospitalization)
  Sender: FDA-Public Use
  Company Number: 04P-163-0271440-00

PATIENT
  Age: 75 Year
  Sex: Male
  Weight: 52.6173 kg

DRUGS (10)
  1. HUMIRA [Suspect]
     Indication: RHEUMATOID ARTHRITIS
     Dosage: 40 MCG, 1 IN 2 WK, SUBCUTANEOUS
     Route: 058
     Dates: start: 20031101, end: 20040501
  2. HUMIRA [Suspect]
     Indication: RHEUMATOID ARTHRITIS
     Dosage: 40 MCG, 1 IN 2 WK, SUBCUTANEOUS
     Route: 058
     Dates: start: 20040701, end: 20040701
  3. METHOTREXATE [Concomitant]
  4. M.V.I. [Concomitant]
  5. SALPOLMENTO [Concomitant]
  6. FOLIC ACID [Concomitant]
  7. IRON [Concomitant]
  8. LANSOPRAZOLE [Concomitant]
  9. SUCRALFATE [Concomitant]
  10. VICODIN [Concomitant]

REACTIONS (8)
  - ADHESION [None]
  - ANAEMIA [None]
  - CHOLELITHIASIS [None]
  - CONSTIPATION [None]
  - HEPATIC NEOPLASM [None]
  - INTESTINAL OBSTRUCTION [None]
  - METASTASES TO CENTRAL NERVOUS SYSTEM [None]
  - RECTAL HAEMORRHAGE [None]
